FAERS Safety Report 8557284 (Version 3)
Quarter: 2012Q4

REPORT INFORMATION
  Report Type: 
  Country: FR (occurrence: FR)
  Receive Date: 20120511
  Receipt Date: 20121009
  Transmission Date: 20130627
  Serious: Yes (Hospitalization)
  Sender: FDA-Public Use
  Company Number: FR-PFIZER INC-2012112707

PATIENT
  Sex: Female

DRUGS (3)
  1. EFFEXOR LP [Suspect]
     Dosage: 37.5 mg, 1x/day
  2. GOTU KOLA [Interacting]
     Dosage: 30 mg, UNK
  3. GOTU KOLA [Interacting]
     Dosage: 15 mg, UNK

REACTIONS (5)
  - Drug interaction [Unknown]
  - Panic attack [Unknown]
  - Fatigue [Unknown]
  - Hypersomnia [Unknown]
  - Drug ineffective [Unknown]
